FAERS Safety Report 7540955-X (Version None)
Quarter: 2011Q2

REPORT INFORMATION
  Report Type: 
  Country: None (occurrence: None)
  Receive Date: 20110610
  Receipt Date: 20110608
  Transmission Date: 20111010
  Serious: No
  Sender: FDA-Public Use
  Company Number: US-PFIZER INC-2011091117

PATIENT
  Sex: Female
  Weight: 89.796 kg

DRUGS (1)
  1. PRISTIQ [Suspect]
     Indication: DEPRESSION
     Dosage: 50 MG, 1X/DAY
     Route: 048
     Dates: end: 20110501

REACTIONS (3)
  - FEELING ABNORMAL [None]
  - NAUSEA [None]
  - LACK OF SPONTANEOUS SPEECH [None]
